FAERS Safety Report 4497084-1 (Version None)
Quarter: 2004Q4

REPORT INFORMATION
  Report Type: 
  Country: None (occurrence: None)
  Receive Date: 20041110
  Receipt Date: 20041103
  Transmission Date: 20050328
  Serious: Yes (Other)
  Sender: FDA-Public Use
  Company Number: US-JNJFOC-20041101206

PATIENT
  Sex: Female
  Weight: 48.54 kg

DRUGS (1)
  1. REMICADE [Suspect]
     Route: 042

REACTIONS (1)
  - HISTOPLASMOSIS [None]
